FAERS Safety Report 25230271 (Version 1)
Quarter: 2025Q2

REPORT INFORMATION
  Report Type: Spontaneous
  Country: DE (occurrence: DE)
  Receive Date: 20250423
  Receipt Date: 20250423
  Transmission Date: 20250716
  Serious: Yes (Congenital Anomaly)
  Sender: TEVA
  Company Number: DE-EMB-M202310722-1

PATIENT
  Sex: Male
  Weight: 3.21 kg

DRUGS (6)
  1. METOPROLOL [Suspect]
     Active Substance: METOPROLOL
     Indication: Peripartum cardiomyopathy
     Dosage: METOPROLOL SUCCINATE 1-0-1
     Route: 064
     Dates: start: 202311, end: 202408
  2. VAXIGRIPTETRA [Concomitant]
     Active Substance: INFLUENZA VIRUS VACCINE QUADRIVALENT TYPE A+B
     Indication: Immunisation
     Route: 064
     Dates: start: 202402, end: 202402
  3. EPLERENONE [Concomitant]
     Active Substance: EPLERENONE
     Indication: Peripartum cardiomyopathy
     Route: 064
     Dates: start: 202311, end: 202312
  4. Covaxis [Concomitant]
     Indication: Immunisation
     Route: 064
     Dates: start: 202406, end: 202406
  5. ENTRESTO [Concomitant]
     Active Substance: SACUBITRIL\VALSARTAN
     Indication: Peripartum cardiomyopathy
     Dosage: 25.5/24.5 (1-0-1)
     Route: 064
     Dates: start: 202311, end: 202312
  6. EUTHYROX [Concomitant]
     Active Substance: LEVOTHYROXINE SODIUM
     Indication: Autoimmune thyroiditis
     Route: 064
     Dates: start: 202311, end: 202408

REACTIONS (2)
  - Congenital hydronephrosis [Not Recovered/Not Resolved]
  - Foetal exposure during pregnancy [Unknown]

NARRATIVE: CASE EVENT DATE: 20240801
